FAERS Safety Report 8054353-6 (Version None)
Quarter: 2012Q1

REPORT INFORMATION
  Report Type: 
  Country: None (occurrence: None)
  Receive Date: 20120118
  Receipt Date: 20120113
  Transmission Date: 20120608
  Serious: Yes (Death, Other)
  Sender: FDA-Public Use
  Company Number: PHHY2012CZ003585

PATIENT
  Age: 51 Year
  Sex: Female

DRUGS (3)
  1. DASATINIB [Suspect]
     Indication: CHRONIC MYELOID LEUKAEMIA
     Dosage: UNK
  2. INTERFERON [Suspect]
     Indication: CHRONIC MYELOID LEUKAEMIA
     Dosage: UNK
  3. IMATINIB MESYLATE [Suspect]
     Indication: CHRONIC MYELOID LEUKAEMIA
     Dosage: UNK UKN, UNK

REACTIONS (3)
  - SEPSIS [None]
  - BREAST CANCER [None]
  - NEOPLASM MALIGNANT [None]
